FAERS Safety Report 7187059-6 (Version None)
Quarter: 2010Q4

REPORT INFORMATION
  Report Type: 
  Country: None (occurrence: None)
  Receive Date: 20101222
  Receipt Date: 20101216
  Transmission Date: 20110411
  Serious: Yes (Other)
  Sender: FDA-Public Use
  Company Number: US-PFIZER INC-2010175673

PATIENT
  Age: 75 Year
  Sex: Female
  Weight: 49.887 kg

DRUGS (1)
  1. ADVIL [Suspect]
     Indication: BACK PAIN
     Dosage: 2 GEL CAPLETS QID
     Dates: start: 20101001, end: 20101201

REACTIONS (1)
  - BLOOD PRESSURE INCREASED [None]
